FAERS Safety Report 16811153 (Version 1)
Quarter: 2019Q3

REPORT INFORMATION
  Report Type: Spontaneous
  Country: AR (occurrence: AR)
  Receive Date: 20190916
  Receipt Date: 20190916
  Transmission Date: 20191005
  Serious: Yes (Hospitalization)
  Sender: FDA-Public Use
  Company Number: AR-PFIZER INC-2019395029

PATIENT
  Age: 73 Year

DRUGS (1)
  1. AXITINIB [Suspect]
     Active Substance: AXITINIB
     Dosage: 10 MG, DAILY

REACTIONS (1)
  - Pancreatitis [Unknown]
